FAERS Safety Report 9999108 (Version 1)
Quarter: 2014Q1

REPORT INFORMATION
  Report Type: Report from Study
  Country: GB (occurrence: GB)
  Receive Date: 20140312
  Receipt Date: 20140312
  Transmission Date: 20141002
  Serious: Yes (Other)
  Sender: FDA-Public Use
  Company Number: GB-JNJFOC-20140301899

PATIENT
  Age: 48 Year
  Sex: Male
  Weight: 73.7 kg

DRUGS (8)
  1. REMICADE [Suspect]
     Indication: PSORIASIS
     Route: 042
     Dates: start: 20101130, end: 20110503
  2. PARACETAMOL [Concomitant]
     Route: 065
     Dates: start: 20111228
  3. VITAMIN B [Concomitant]
     Route: 065
     Dates: start: 20111228
  4. ACITRETIN [Concomitant]
     Route: 065
     Dates: start: 20121106
  5. HYDROXYCARBAMIDE [Concomitant]
     Route: 065
     Dates: start: 20130402
  6. FLUOXETINE [Concomitant]
     Route: 065
     Dates: start: 20121211
  7. FLUOXETINE [Concomitant]
     Route: 065
  8. CO-AMOXICLAV [Concomitant]
     Route: 065
     Dates: start: 20111215

REACTIONS (1)
  - Squamous cell carcinoma [Recovered/Resolved]
